FAERS Safety Report 5256632-4 (Version None)
Quarter: 2007Q1

REPORT INFORMATION
  Report Type: 
  Country: None (occurrence: None)
  Receive Date: 20070306
  Receipt Date: 20070209
  Transmission Date: 20070707
  Serious: Yes (Other)
  Sender: FDA-Public Use
  Company Number: US-PFIZER INC-2007012777

PATIENT
  Sex: Female
  Weight: 96.2 kg

DRUGS (2)
  1. BEXTRA [Suspect]
     Indication: FRACTURE NONUNION
  2. BEXTRA [Suspect]
     Indication: RHEUMATOID ARTHRITIS

REACTIONS (1)
  - STEVENS-JOHNSON SYNDROME [None]
